FAERS Safety Report 10649441 (Version 1)
Quarter: 2014Q4

REPORT INFORMATION
  Report Type: Spontaneous
  Country: EC (occurrence: EC)
  Receive Date: 20141212
  Receipt Date: 20141212
  Transmission Date: 20150529
  Serious: Yes (Hospitalization)
  Sender: FDA-Public Use
  Company Number: EC-ASTRAZENECA-2014SE95356

PATIENT

DRUGS (2)
  1. LITHIUM [Suspect]
     Active Substance: LITHIUM CARBONATE
     Route: 048
  2. SEROQUEL [Suspect]
     Active Substance: QUETIAPINE FUMARATE
     Route: 048

REACTIONS (2)
  - Shock [Unknown]
  - Drug interaction [Unknown]
